FAERS Safety Report 7960047-5 (Version None)
Quarter: 2011Q4

REPORT INFORMATION
  Report Type: 
  Country: None (occurrence: None)
  Receive Date: 20111206
  Receipt Date: 20111125
  Transmission Date: 20120403
  Serious: Yes (Hospitalization)
  Sender: FDA-Public Use
  Company Number: PHHY2011AU105982

PATIENT

DRUGS (1)
  1. ONBREZ [Suspect]
     Dosage: UNK
     Dates: start: 20110101

REACTIONS (1)
  - CARDIAC FAILURE [None]
